FAERS Safety Report 23785988 (Version 1)
Quarter: 2024Q2

REPORT INFORMATION
  Report Type: Spontaneous
  Country: US (occurrence: US)
  Receive Date: 20240426
  Receipt Date: 20240426
  Transmission Date: 20240715
  Serious: No
  Sender: FDA-Public Use
  Company Number: US-ABBVIE-5731041

PATIENT
  Age: 35 Year
  Sex: Female
  Weight: 77 kg

DRUGS (2)
  1. VRAYLAR [Suspect]
     Active Substance: CARIPRAZINE
     Indication: Depression
     Dosage: FORM STRENGTH: 1.5 MILLIGRAM, IN THE MORNING, DURATION TEXT: FROM -NOV OR DEC-2023, TILL 3-5 WEEK...
     Route: 048
     Dates: start: 202311, end: 202403
  2. VRAYLAR [Suspect]
     Active Substance: CARIPRAZINE
     Indication: Depression
     Dosage: FORM STRENGTH: 60 MILLIGRAM, IN THE MORNING, DURATION TEXT: 3 TO 5 WEEKS
     Route: 048
     Dates: start: 202403

REACTIONS (4)
  - Blood pressure increased [Recovering/Resolving]
  - Memory impairment [Recovered/Resolved]
  - Disturbance in attention [Recovering/Resolving]
  - Hypoaesthesia [Not Recovered/Not Resolved]

NARRATIVE: CASE EVENT DATE: 20240415
